FAERS Safety Report 7027987-5 (Version None)
Quarter: 2010Q4

REPORT INFORMATION
  Report Type: 
  Country: None (occurrence: None)
  Receive Date: 20101005
  Receipt Date: 20100923
  Transmission Date: 20110411
  Serious: Yes (Hospitalization)
  Sender: FDA-Public Use
  Company Number: US-US-EMD SERONO, INC.-7018652

PATIENT
  Sex: Female
  Weight: 88 kg

DRUGS (3)
  1. REBIF [Suspect]
     Indication: MULTIPLE SCLEROSIS
     Route: 058
     Dates: start: 20100505
  2. ALEVE (CAPLET) [Concomitant]
     Indication: PREMEDICATION
  3. BIRTH CONTROL PILL [Concomitant]
     Indication: MENSTRUATION IRREGULAR
     Dates: start: 20070101

REACTIONS (4)
  - ADVERSE DRUG REACTION [None]
  - FATIGUE [None]
  - INJECTION SITE PAIN [None]
  - OVARIAN CYST [None]
